FAERS Safety Report 7641345-1 (Version None)
Quarter: 2011Q3

REPORT INFORMATION
  Report Type: 
  Country: None (occurrence: None)
  Receive Date: 20110728
  Receipt Date: 20110720
  Transmission Date: 20111222
  Serious: Yes (Death)
  Sender: FDA-Public Use
  Company Number: US-JNJFOC-20110707418

PATIENT
  Age: 73 Year
  Sex: Female

DRUGS (6)
  1. HEPARIN [Suspect]
     Indication: PRODUCT USED FOR UNKNOWN INDICATION
     Dosage: 4000 UNITS
     Route: 040
  2. REOPRO [Suspect]
     Indication: ANEURYSM
     Dosage: IV BOLUS
     Route: 042
  3. REOPRO [Suspect]
     Dosage: IV INFUSION ADMINISTERED AT A RATE OF 0.125 MCG/KG/MIN
     Route: 042
  4. REOPRO [Suspect]
     Dosage: IV INFUSION ADMINISTERED AT A RATE OF 0.125 MCG/KG/MIN
     Route: 042
  5. REOPRO [Suspect]
     Indication: STENT PLACEMENT
     Dosage: IV BOLUS
     Route: 042
  6. ASPIRIN [Concomitant]
     Route: 050

REACTIONS (2)
  - INTRAVENTRICULAR HAEMORRHAGE [None]
  - SUBARACHNOID HAEMORRHAGE [None]
